FAERS Safety Report 4803332-8 (Version None)
Quarter: 2005Q4

REPORT INFORMATION
  Report Type: 
  Country: None (occurrence: None)
  Receive Date: 20051013
  Receipt Date: 20051005
  Transmission Date: 20060501
  Serious: Yes (Hospitalization)
  Sender: FDA-Public Use
  Company Number: 27636

PATIENT
  Age: 64 Year
  Sex: Male

DRUGS (3)
  1. ALDARA [Suspect]
     Indication: ACTINIC KERATOSIS
     Dosage: 0.5 SACHET, 1 IN 1 DAY(S), TOPICAL
     Route: 061
     Dates: start: 20050929, end: 20051002
  2. ZOCOR [Concomitant]
  3. NORVASC [Concomitant]

REACTIONS (3)
  - BACK PAIN [None]
  - CHEST PAIN [None]
  - HOT FLUSH [None]
